FAERS Safety Report 6871740-X (Version None)
Quarter: 2010Q3

REPORT INFORMATION
  Report Type: 
  Country: None (occurrence: None)
  Receive Date: 20100723
  Receipt Date: 20100716
  Transmission Date: 20110219
  Serious: Yes (Other)
  Sender: FDA-Public Use
  Company Number: A0870841A

PATIENT
  Age: 36 Year
  Sex: Male

DRUGS (4)
  1. ADVAIR DISKUS 100/50 [Suspect]
     Indication: ASTHMA
     Dosage: 1PUFF TWICE PER DAY
     Route: 055
     Dates: end: 20100601
  2. SINGULAIR [Concomitant]
  3. ALBUTEROL [Concomitant]
  4. PROVENTIL [Concomitant]

REACTIONS (3)
  - ASTHMA [None]
  - FATIGUE [None]
  - RESPIRATORY FAILURE [None]
